FAERS Safety Report 7617618-5 (Version None)
Quarter: 2011Q3

REPORT INFORMATION
  Report Type: 
  Country: None (occurrence: None)
  Receive Date: 20110718
  Receipt Date: 20110705
  Transmission Date: 20111222
  Serious: Yes (Other)
  Sender: FDA-Public Use
  Company Number: US-JNJFOC-20110704919

PATIENT
  Age: 36 Year
  Sex: Female

DRUGS (1)
  1. ORTHOCLONE OKT3 [Suspect]
     Indication: IMMUNOSUPPRESSION
     Route: 065

REACTIONS (1)
  - FALSE POSITIVE INVESTIGATION RESULT [None]
